FAERS Safety Report 11540335 (Version 1)
Quarter: 2015Q3

REPORT INFORMATION
  Report Type: Spontaneous
  Country: US (occurrence: US)
  Receive Date: 20150923
  Receipt Date: 20150923
  Transmission Date: 20151125
  Serious: No
  Sender: FDA-Public Use
  Company Number: US-BEH-2014043874

PATIENT
  Age: 71 Year
  Sex: Female
  Weight: 77 kg

DRUGS (22)
  1. PRIVIGEN [Suspect]
     Active Substance: HUMAN IMMUNOGLOBULIN G
     Indication: IMMUNODEFICIENCY COMMON VARIABLE
     Route: 042
     Dates: start: 20140708, end: 20140708
  2. DIPHENHYDRAMINE. [Concomitant]
     Active Substance: DIPHENHYDRAMINE
  3. EFFEXOR XR [Concomitant]
     Active Substance: VENLAFAXINE HYDROCHLORIDE
  4. GABAPENTIN. [Concomitant]
     Active Substance: GABAPENTIN
  5. FLORASTOR [Concomitant]
     Active Substance: SACCHAROMYCES CEREVISIAE
  6. ALL OTHER NON-THERAPEUTIC PRODUCTS [Concomitant]
     Active Substance: UNSPECIFIED INGREDIENT
  7. PROTONIX DR [Concomitant]
  8. RESTORIL [Concomitant]
     Active Substance: TEMAZEPAM
  9. VITAMIN D [Concomitant]
     Active Substance: CHOLECALCIFEROL
  10. ACETAMINOPHEN. [Concomitant]
     Active Substance: ACETAMINOPHEN
  11. HEPARIN [Concomitant]
     Active Substance: HEPARIN SODIUM
  12. EPIPEN [Concomitant]
     Active Substance: EPINEPHRINE
  13. BENICAR HCT [Concomitant]
     Active Substance: HYDROCHLOROTHIAZIDE\OLMESARTAN MEDOXOMIL
  14. TOPROL XL [Concomitant]
     Active Substance: METOPROLOL SUCCINATE
  15. PRIVIGEN [Suspect]
     Active Substance: HUMAN IMMUNOGLOBULIN G
     Route: 042
     Dates: start: 20140708, end: 20140708
  16. SODIUM CHLORIDE. [Concomitant]
     Active Substance: SODIUM CHLORIDE
  17. PLAQUENIL [Concomitant]
     Active Substance: HYDROXYCHLOROQUINE SULFATE
  18. FLONASE [Concomitant]
     Active Substance: FLUTICASONE PROPIONATE
  19. FERROUS SULFATE [Concomitant]
     Active Substance: FERROUS SULFATE\FERROUS SULFATE, DRIED
  20. MULTIVITAMINS [Concomitant]
     Active Substance: VITAMINS
  21. TRAMADOL. [Concomitant]
     Active Substance: TRAMADOL
  22. CLOBETASOL [Concomitant]
     Active Substance: CLOBETASOL

REACTIONS (2)
  - Chills [Unknown]
  - Restless legs syndrome [Unknown]

NARRATIVE: CASE EVENT DATE: 20140708
